FAERS Safety Report 10367792 (Version 3)
Quarter: 2014Q3

REPORT INFORMATION
  Report Type: Spontaneous
  Country: CH (occurrence: CH)
  Receive Date: 20140807
  Receipt Date: 20140903
  Transmission Date: 20150326
  Serious: Yes (Other)
  Sender: FDA-Public Use
  Company Number: CH-TEVA-492097ISR

PATIENT
  Age: 41 Year
  Sex: Male
  Weight: 82 kg

DRUGS (2)
  1. COPAXONE [Suspect]
     Active Substance: GLATIRAMER ACETATE
     Indication: MULTIPLE SCLEROSIS
     Dosage: 20 MILLIGRAM DAILY;
     Route: 058
     Dates: start: 201204, end: 201406
  2. IBUPROFEN 400 MG [Concomitant]
     Active Substance: IBUPROFEN
     Dosage: DRUG USED OCCASIONALLY, ABOUT 2 X PER MONTH
     Route: 065

REACTIONS (2)
  - Laryngeal papilloma [Unknown]
  - Fungal skin infection [Unknown]

NARRATIVE: CASE EVENT DATE: 2013
